FAERS Safety Report 19661996 (Version 1)
Quarter: 2021Q3

REPORT INFORMATION
  Report Type: Spontaneous
  Country: US (occurrence: US)
  Receive Date: 20210805
  Receipt Date: 20210805
  Transmission Date: 20211014
  Serious: No
  Sender: FDA-Public Use
  Company Number: US-PFIZER INC-2021587241

PATIENT
  Age: 3 Year
  Sex: Male

DRUGS (1)
  1. HYDROCORTISONE ACETATE. [Suspect]
     Active Substance: HYDROCORTISONE ACETATE
     Dosage: UNK, 2X/DAY
     Dates: start: 201804, end: 201808

REACTIONS (2)
  - Drug ineffective [Unknown]
  - Drug intolerance [Unknown]
